FAERS Safety Report 24421800 (Version 2)
Quarter: 2024Q4

REPORT INFORMATION
  Report Type: Spontaneous
  Country: IN (occurrence: IN)
  Receive Date: 20241010
  Receipt Date: 20241220
  Transmission Date: 20250115
  Serious: Yes (Death)
  Sender: MAYNE
  Company Number: IN-MAYNE PHARMA-2024MYN000447

PATIENT

DRUGS (2)
  1. TOLSURA [Suspect]
     Active Substance: ITRACONAZOLE
     Indication: Body tinea
     Dosage: UNK
     Route: 065
  2. TERBINAFINE [Suspect]
     Active Substance: TERBINAFINE\TERBINAFINE HYDROCHLORIDE
     Indication: Body tinea
     Dosage: UNK
     Route: 065

REACTIONS (1)
  - Diffuse vasculitis [Fatal]
